FAERS Safety Report 5746356-9 (Version None)
Quarter: 2008Q2

REPORT INFORMATION
  Report Type: 
  Country: None (occurrence: None)
  Receive Date: 20080522
  Receipt Date: 20080519
  Transmission Date: 20081010
  Serious: Yes (Other)
  Sender: FDA-Public Use
  Company Number: PHHY2008BR08203

PATIENT

DRUGS (1)
  1. TEGRETOL [Suspect]
     Indication: DEPRESSION
     Dosage: 200 MG, UNK
     Route: 048
     Dates: start: 20080101

REACTIONS (7)
  - ABNORMAL BEHAVIOUR [None]
  - CRYING [None]
  - SPERM COUNT DECREASED [None]
  - SPERM COUNT ZERO [None]
  - SUICIDAL BEHAVIOUR [None]
  - WEIGHT DECREASED [None]
  - WEIGHT INCREASED [None]
